FAERS Safety Report 15373355 (Version 10)
Quarter: 2019Q1

REPORT INFORMATION
  Report Type: Report from Study
  Country: US (occurrence: US)
  Receive Date: 20180912
  Receipt Date: 20190117
  Transmission Date: 20190417
  Serious: Yes (Other)
  Sender: FDA-Public Use
  Company Number: US-BRISTOL-MYERS SQUIBB COMPANY-BMS-2018-071976

PATIENT
  Sex: Male

DRUGS (4)
  1. MULTIVITAMIN                       /00097801/ [Concomitant]
     Active Substance: VITAMINS
     Indication: PRODUCT USED FOR UNKNOWN INDICATION
     Route: 065
  2. NIVOLUMAB [Suspect]
     Active Substance: NIVOLUMAB
     Indication: RENAL CELL CARCINOMA
     Dosage: UNK UNK, Q2WK
     Route: 042
     Dates: start: 20180801
  3. LEVOTHYROXINE. [Concomitant]
     Active Substance: LEVOTHYROXINE
     Indication: PRODUCT USED FOR UNKNOWN INDICATION
     Dosage: 50 ?G, QD
     Route: 065
     Dates: start: 20190105
  4. ELIQUIS [Concomitant]
     Active Substance: APIXABAN
     Indication: PRODUCT USED FOR UNKNOWN INDICATION
     Route: 065

REACTIONS (30)
  - Feeling abnormal [Unknown]
  - Anxiety [Unknown]
  - Sneezing [Unknown]
  - Skin cancer [Unknown]
  - Dyspnoea [Recovering/Resolving]
  - Scab [Unknown]
  - Abdominal pain lower [Not Recovered/Not Resolved]
  - Musculoskeletal pain [Unknown]
  - Weight decreased [Unknown]
  - Energy increased [Unknown]
  - Myalgia [Unknown]
  - Pruritus [Recovered/Resolved]
  - Headache [Recovered/Resolved]
  - Abdominal distension [Recovering/Resolving]
  - Arthralgia [Unknown]
  - Periarthritis [Unknown]
  - Cough [Not Recovered/Not Resolved]
  - Nasopharyngitis [Unknown]
  - Dysphonia [Unknown]
  - Bursitis [Unknown]
  - Fatigue [Unknown]
  - Lower respiratory tract infection [Unknown]
  - Flatulence [Unknown]
  - Abdominal discomfort [Not Recovered/Not Resolved]
  - Abdominal tenderness [Unknown]
  - Respiration abnormal [Unknown]
  - Onychoclasis [Unknown]
  - Condition aggravated [Unknown]
  - Frequent bowel movements [Unknown]
  - Dry skin [Recovered/Resolved]
